FAERS Safety Report 6089099-7 (Version None)
Quarter: 2009Q1

REPORT INFORMATION
  Report Type: 
  Country: None (occurrence: None)
  Receive Date: 20090224
  Receipt Date: 20090213
  Transmission Date: 20090719
  Serious: Yes (Other)
  Sender: FDA-Public Use
  Company Number: GB-JNJFOC-20090204123

PATIENT
  Age: 24 Year
  Sex: Female

DRUGS (3)
  1. ACETAMINOPHEN [Suspect]
     Route: 048
  2. ACETAMINOPHEN [Suspect]
     Indication: ANALGESIA
     Route: 048
  3. ANTIHISTAMINES [Concomitant]

REACTIONS (3)
  - SKIN SWELLING [None]
  - SKIN TIGHTNESS [None]
  - URTICARIA [None]
